FAERS Safety Report 6919077-4 (Version None)
Quarter: 2010Q3

REPORT INFORMATION
  Report Type: 
  Country: None (occurrence: None)
  Receive Date: 20100811
  Receipt Date: 20100806
  Transmission Date: 20110219
  Serious: Yes (Death, Congenital Anomaly)
  Sender: FDA-Public Use
  Company Number: PHHY2010FR52057

PATIENT

DRUGS (2)
  1. TRILEPTAL [Suspect]
     Dosage: MATERNAL DOSE WAS 1500 MG DAILY
     Route: 064
  2. DEPAKENE [Suspect]
     Dosage: MATERNAL DOSE WAS 1000 MG DAILY
     Route: 064

REACTIONS (2)
  - DRUG EXPOSURE DURING PREGNANCY [None]
  - LIMB MALFORMATION [None]
